FAERS Safety Report 4528778-7 (Version None)
Quarter: 2004Q4

REPORT INFORMATION
  Report Type: 
  Country: None (occurrence: None)
  Receive Date: 20041214
  Receipt Date: 20040908
  Transmission Date: 20050328
  Serious: Yes (Hospitalization)
  Sender: FDA-Public Use
  Company Number: STA-AE-04-MTX-616

PATIENT
  Age: 71 Year
  Sex: Female

DRUGS (8)
  1. RHEUMATREX [Suspect]
     Indication: RHEUMATOID ARTHRITIS
     Dosage: 9 MG PER WEEK; ORAL
     Route: 048
     Dates: start: 20031128, end: 20040901
  2. ALENDRONATE SODIUM [Concomitant]
  3. ZANTAC [Concomitant]
  4. WARFARIN POTASSIUM [Concomitant]
  5. JUVELA NICOTINATE (TOCOPHERYL NICOTINATE) [Concomitant]
  6. METHYCOBAL (MECOBALAMIN) [Concomitant]
  7. VOLATREN (DICLOFENAC SODIUM) [Concomitant]
  8. CYTOTEC [Concomitant]

REACTIONS (2)
  - DYSPNOEA [None]
  - LIVER DISORDER [None]
